FAERS Safety Report 17965124 (Version 2)
Quarter: 2020Q3

REPORT INFORMATION
  Report Type: Spontaneous
  Country: BR (occurrence: US)
  Receive Date: 20200630
  Receipt Date: 20200730
  Transmission Date: 20201103
  Serious: Yes (Other)
  Sender: FDA-Public Use
  Company Number: BR-BAYER-2020-129793

PATIENT
  Age: 42 Year
  Sex: Female

DRUGS (3)
  1. MIRENA [Suspect]
     Active Substance: LEVONORGESTREL
     Indication: MENORRHAGIA
     Dosage: 20 ?G CONTINUOUSLY
     Route: 015
     Dates: start: 20190629
  2. MIRENA [Suspect]
     Active Substance: LEVONORGESTREL
     Indication: PREMENSTRUAL SYNDROME
  3. MIRENA [Suspect]
     Active Substance: LEVONORGESTREL
     Indication: ABDOMINAL PAIN

REACTIONS (3)
  - Premenstrual syndrome [Not Recovered/Not Resolved]
  - Abdominal pain [Not Recovered/Not Resolved]
  - Genital haemorrhage [Not Recovered/Not Resolved]
